FAERS Safety Report 9158479 (Version 3)
Quarter: 2013Q2

REPORT INFORMATION
  Report Type: Report from Study
  Country: DE (occurrence: DE)
  Receive Date: 20130312
  Receipt Date: 20130408
  Transmission Date: 20140414
  Serious: Yes (Hospitalization)
  Sender: FDA-Public Use
  Company Number: DE-TEVA-389851ISR

PATIENT
  Age: 60 Year
  Sex: Female
  Weight: 92.5 kg

DRUGS (3)
  1. PACLITAXEL [Suspect]
     Indication: OVARIAN CANCER
     Dosage: LAST DOSE PRIOR TO SAE ON 18-MAR-2013 (332.50 MG)
     Route: 042
     Dates: start: 20121217
  2. CARBOPLATIN [Suspect]
     Indication: OVARIAN CANCER
     Dosage: LAST DOSE PRIOR TO SAE ON 18-MAR-2013 (701.70 MG)
     Route: 042
     Dates: start: 20121217
  3. BEVACIZUMAB [Suspect]
     Indication: OVARIAN CANCER
     Dosage: LAST DOSE PRIOR TO SAE ON 18-MAR-2013 (1449 MG)
     Route: 042
     Dates: start: 20121217

REACTIONS (6)
  - Dyspnoea [Unknown]
  - Vomiting [Unknown]
  - Febrile neutropenia [Recovered/Resolved]
  - Condition aggravated [Not Recovered/Not Resolved]
  - Fatigue [Unknown]
  - Blood bilirubin increased [Unknown]
